FAERS Safety Report 15349922 (Version 3)
Quarter: 2018Q4

REPORT INFORMATION
  Report Type: Spontaneous
  Country: DE (occurrence: DE)
  Receive Date: 20180904
  Receipt Date: 20181015
  Transmission Date: 20190204
  Serious: Yes (Other)
  Sender: FDA-Public Use
  Company Number: PHHY2018DE087640

PATIENT
  Age: 51 Year
  Sex: Female

DRUGS (8)
  1. PROGESTERONE. [Suspect]
     Active Substance: PROGESTERONE
     Dosage: 100 MG, QD
     Route: 048
     Dates: start: 201612, end: 201703
  2. SERTRALINE HYDROCHLORIDE. [Concomitant]
     Active Substance: SERTRALINE HYDROCHLORIDE
     Indication: PRODUCT USED FOR UNKNOWN INDICATION
     Dosage: UNK
     Route: 065
  3. ESTRADIOL. [Suspect]
     Active Substance: ESTRADIOL
     Indication: HORMONE REPLACEMENT THERAPY
     Dosage: 1 DF, QD, GEL, 1 PUFF DAILY (UNKNOWN, 1 D)
     Route: 062
     Dates: start: 201508
  4. LEVOTHYROXINE. [Concomitant]
     Active Substance: LEVOTHYROXINE
     Indication: PRODUCT USED FOR UNKNOWN INDICATION
     Route: 065
  5. VALSARTAN. [Suspect]
     Active Substance: VALSARTAN
     Indication: BLOOD PRESSURE ABNORMAL
  6. PROGESTERONE. [Suspect]
     Active Substance: PROGESTERONE
     Indication: HORMONE REPLACEMENT THERAPY
     Dosage: 100 MG, QD
     Route: 048
     Dates: start: 201508, end: 201510
  7. VALSARTAN. [Suspect]
     Active Substance: VALSARTAN
     Indication: HYPERTENSION
     Dosage: 80 MG, QD
     Route: 048
  8. ESTRADIOL. [Suspect]
     Active Substance: ESTRADIOL
     Dosage: 1 DF, QD, 1 PUFF DAILY
     Route: 062
     Dates: start: 201612

REACTIONS (4)
  - Ophthalmic vein thrombosis [Unknown]
  - Retinal vein occlusion [Recovered/Resolved]
  - Product taste abnormal [Unknown]
  - Product odour abnormal [Unknown]

NARRATIVE: CASE EVENT DATE: 201704
